FAERS Safety Report 5422860-8 (Version None)
Quarter: 2007Q3

REPORT INFORMATION
  Report Type: 
  Country: None (occurrence: None)
  Receive Date: 20070822
  Receipt Date: 20070808
  Transmission Date: 20080115
  Serious: Yes (Other)
  Sender: FDA-Public Use
  Company Number: US-PFIZER INC-2007068805

PATIENT
  Age: 71 Year
  Sex: Male

DRUGS (1)
  1. DILANTIN [Suspect]

REACTIONS (4)
  - ANTICONVULSANT DRUG LEVEL INCREASED [None]
  - FACIAL BONES FRACTURE [None]
  - FALL [None]
  - GAIT DISTURBANCE [None]
